FAERS Safety Report 5220245-0 (Version None)
Quarter: 2007Q1

REPORT INFORMATION
  Report Type: 
  Country: None (occurrence: None)
  Receive Date: 20061208
  Receipt Date: 20060809
  Transmission Date: 20070707
  Serious: Yes (Other)
  Sender: FDA-Public Use
  Company Number: 2005124194

PATIENT
  Sex: Male
  Weight: 90.7194 kg

DRUGS (5)
  1. VIAGRA [Suspect]
     Indication: ERECTILE DYSFUNCTION
     Dosage: 50 MG (50 MG, 1 AS NECESSARY)
     Dates: start: 20050101
  2. TRIMIX (AMINO ACIDS NOS, FATS NOS, GLUCOSE) [Suspect]
     Indication: DRUG USE FOR UNKNOWN INDICATION
  3. LOPRESSOR [Concomitant]
  4. ACTOS [Concomitant]
  5. GLUCOPHAGE [Concomitant]

REACTIONS (5)
  - BLOOD TESTOSTERONE DECREASED [None]
  - ERECTILE DYSFUNCTION [None]
  - ERECTION INCREASED [None]
  - HEADACHE [None]
  - PENILE PAIN [None]
